FAERS Safety Report 6758060-9 (Version None)
Quarter: 2010Q2

REPORT INFORMATION
  Report Type: 
  Country: None (occurrence: None)
  Receive Date: 20100607
  Receipt Date: 20100528
  Transmission Date: 20101027
  Serious: Yes (Other)
  Sender: FDA-Public Use
  Company Number: US-ASTRAZENECA-2010SE12254

PATIENT
  Age: 18 Year
  Sex: Male
  Weight: 81.6 kg

DRUGS (6)
  1. ENTOCORT EC [Suspect]
     Indication: COLITIS ULCERATIVE
     Route: 048
     Dates: start: 20100302, end: 20100307
  2. LIALDA [Concomitant]
     Indication: COLITIS ULCERATIVE
     Route: 048
     Dates: start: 20090501
  3. VIT B12 [Concomitant]
     Route: 048
  4. VITAMIN B6 [Concomitant]
     Route: 048
  5. FOLIC ACID [Concomitant]
     Route: 048
  6. IRON [Concomitant]
     Route: 048

REACTIONS (6)
  - CHEST PAIN [None]
  - COLITIS ULCERATIVE [None]
  - DYSPNOEA [None]
  - HYPOAESTHESIA [None]
  - MUSCULOSKELETAL PAIN [None]
  - NECK PAIN [None]
